FAERS Safety Report 7821699-3 (Version None)
Quarter: 2011Q4

REPORT INFORMATION
  Report Type: 
  Country: None (occurrence: None)
  Receive Date: 20111018
  Receipt Date: 20110228
  Transmission Date: 20120403
  Serious: No
  Sender: FDA-Public Use
  Company Number: US-ASTRAZENECA-2010SE60556

PATIENT
  Age: 27818 Day
  Sex: Male

DRUGS (1)
  1. SYMBICORT [Suspect]
     Dosage: 160/ 4.5 MCG
     Route: 055

REACTIONS (4)
  - MALAISE [None]
  - DIZZINESS [None]
  - DRUG DOSE OMISSION [None]
  - MENTAL IMPAIRMENT [None]
